FAERS Safety Report 11250562 (Version 1)
Quarter: 2015Q3

REPORT INFORMATION
  Report Type: Spontaneous
  Country: US (occurrence: US)
  Receive Date: 20150708
  Receipt Date: 20150708
  Transmission Date: 20151125
  Serious: Yes (Other)
  Sender: FDA-Public Use
  Company Number: US-PFIZER INC-2015223380

PATIENT
  Age: 74 Year
  Sex: Female
  Weight: 54.42 kg

DRUGS (2)
  1. CHANTIX [Suspect]
     Active Substance: VARENICLINE TARTRATE
     Indication: SMOKING CESSATION THERAPY
     Dosage: 10 MG, 2X/DAY (5 MG TWO IN MORNING AND TWO IN AFTERNOON)
     Route: 048
     Dates: start: 201503, end: 201503
  2. COUMADIN [Interacting]
     Active Substance: WARFARIN SODIUM
     Indication: ANTICOAGULANT THERAPY
     Dosage: UNK

REACTIONS (11)
  - Weight decreased [Recovering/Resolving]
  - Bone pain [Unknown]
  - Gait disturbance [Unknown]
  - Pain [Unknown]
  - Drug interaction [Unknown]
  - Blindness unilateral [Unknown]
  - Decreased appetite [Recovering/Resolving]
  - Joint stiffness [Unknown]
  - Blood cholesterol abnormal [Unknown]
  - Musculoskeletal stiffness [Unknown]
  - Hip fracture [Unknown]

NARRATIVE: CASE EVENT DATE: 201503
